FAERS Safety Report 7623502-3 (Version None)
Quarter: 2011Q3

REPORT INFORMATION
  Report Type: 
  Country: None (occurrence: None)
  Receive Date: 20110720
  Receipt Date: 20110705
  Transmission Date: 20111222
  Serious: Yes (Hospitalization)
  Sender: FDA-Public Use
  Company Number: DE-SANOFI-AVENTIS-2011SA044148

PATIENT
  Sex: Male
  Weight: 140 kg

DRUGS (8)
  1. ENALAPRIL MALEATE [Concomitant]
  2. SIMVASTATIN [Concomitant]
  3. INSULIN [Concomitant]
  4. BISOPROLOL [Concomitant]
  5. PHENPROCOUMON [Concomitant]
  6. TORSEMIDE [Concomitant]
  7. DIGOXIN [Concomitant]
  8. DRONEDARONE HCL [Suspect]
     Indication: ATRIAL FIBRILLATION
     Route: 048
     Dates: start: 20101115

REACTIONS (1)
  - CAROTID ARTERY ANEURYSM [None]
